FAERS Safety Report 5163844-7 (Version None)
Quarter: 2006Q4

REPORT INFORMATION
  Report Type: 
  Country: None (occurrence: None)
  Receive Date: 20061124
  Receipt Date: 20061110
  Transmission Date: 20070319
  Serious: Yes (Other)
  Sender: FDA-Public Use
  Company Number: 2006140505

PATIENT
  Age: 45 Year
  Sex: Male
  Weight: 72.5755 kg

DRUGS (1)
  1. LYRICA [Suspect]
     Indication: NEUROPATHY PERIPHERAL
     Dates: end: 20060601

REACTIONS (4)
  - DIZZINESS [None]
  - MUSCLE TWITCHING [None]
  - SOMNOLENCE [None]
  - VITREOUS FLOATERS [None]
